FAERS Safety Report 10372311 (Version 1)
Quarter: 2014Q3

REPORT INFORMATION
  Report Type: Spontaneous
  Country: US (occurrence: US)
  Receive Date: 20140808
  Receipt Date: 20140808
  Transmission Date: 20150326
  Serious: No
  Sender: FDA-Public Use
  Company Number: US-BRISTOL-MYERS SQUIBB COMPANY-20872420

PATIENT
  Age: 77 Year
  Sex: Male
  Weight: 70.29 kg

DRUGS (1)
  1. SPRYCEL [Suspect]
     Active Substance: DASATINIB
     Indication: LEUKAEMIA

REACTIONS (6)
  - Sensitivity of teeth [Unknown]
  - Tooth extraction [Unknown]
  - Dysgeusia [Unknown]
  - Productive cough [Unknown]
  - Asthenia [Unknown]
  - Blood glucose decreased [Unknown]
